FAERS Safety Report 7817770-2 (Version None)
Quarter: 2011Q4

REPORT INFORMATION
  Report Type: 
  Country: None (occurrence: None)
  Receive Date: 20111017
  Receipt Date: 20111012
  Transmission Date: 20120403
  Serious: Yes (Other)
  Sender: FDA-Public Use
  Company Number: CH-PFIZER INC-2011183441

PATIENT
  Age: 33 Year
  Sex: Female

DRUGS (1)
  1. DEPO-PROVERA [Suspect]
     Indication: CONTRACEPTION
     Dosage: 510 MG, SINGLE
     Route: 030
     Dates: start: 20110615, end: 20110615

REACTIONS (16)
  - WEIGHT INCREASED [None]
  - DEPRESSION [None]
  - INSOMNIA [None]
  - LYMPHOSTASIS [None]
  - SENSATION OF HEAVINESS [None]
  - ACTIVITIES OF DAILY LIVING IMPAIRED [None]
  - CRYING [None]
  - ACCIDENTAL OVERDOSE [None]
  - BONE PAIN [None]
  - FEELING ABNORMAL [None]
  - OEDEMA PERIPHERAL [None]
  - FATIGUE [None]
  - DISTURBANCE IN ATTENTION [None]
  - ANGER [None]
  - BREAST DISCOMFORT [None]
  - DRUG DISPENSING ERROR [None]
